FAERS Safety Report 5153171-6 (Version None)
Quarter: 2006Q4

REPORT INFORMATION
  Report Type: 
  Country: None (occurrence: None)
  Receive Date: 20061117
  Receipt Date: 20061113
  Transmission Date: 20070319
  Serious: Yes (Other)
  Sender: FDA-Public Use
  Company Number: GB-BRISTOL-MYERS SQUIBB COMPANY-13577077

PATIENT
  Age: 62 Year
  Sex: Male

DRUGS (6)
  1. LISINOPRIL [Suspect]
  2. SOTALOL HYDROCHLORIDE [Suspect]
  3. WARFARIN SODIUM [Suspect]
  4. ALLOPURINOL [Suspect]
  5. AMLODIPINE [Suspect]
  6. SIMVASTATIN [Suspect]

REACTIONS (1)
  - THROMBOCYTOPENIA [None]
